FAERS Safety Report 4663967-2 (Version None)
Quarter: 2005Q2

REPORT INFORMATION
  Report Type: 
  Country: None (occurrence: None)
  Receive Date: 20050427
  Receipt Date: 20040618
  Transmission Date: 20051028
  Serious: Yes (Hospitalization)
  Sender: FDA-Public Use
  Company Number: PHEH2004US05049

PATIENT
  Age: 53 Year
  Sex: Female

DRUGS (1)
  1. SERENTIL [Suspect]
     Indication: MENTAL DISORDER
     Dosage: 100 MG, QD, UNK
     Dates: start: 19940101

REACTIONS (1)
  - HALLUCINATIONS, MIXED [None]
